FAERS Safety Report 4518635-4 (Version None)
Quarter: 2004Q4

REPORT INFORMATION
  Report Type: 
  Country: None (occurrence: None)
  Receive Date: 20041101
  Receipt Date: 20030918
  Transmission Date: 20050328
  Serious: Yes (Hospitalization)
  Sender: FDA-Public Use
  Company Number: 200318321US

PATIENT
  Age: 71 Year
  Sex: Male

DRUGS (3)
  1. DOLASETRON [Suspect]
     Dosage: 100 MG ONCE IV
     Route: 042
     Dates: start: 20030808, end: 20030808
  2. GEMCITABINE HYDROCHLORIDE [Concomitant]
  3. DEXAMETHASONE [Concomitant]

REACTIONS (3)
  - BLOOD PRESSURE DECREASED [None]
  - DIZZINESS [None]
  - HYPERHIDROSIS [None]
